FAERS Safety Report 13801651 (Version 3)
Quarter: 2017Q3

REPORT INFORMATION
  Report Type: Spontaneous
  Country: IT (occurrence: IT)
  Receive Date: 20170727
  Receipt Date: 20170828
  Transmission Date: 20171127
  Serious: Yes (Congenital Anomaly, Other)
  Sender: FDA-Public Use
  Company Number: PHHY2017IT108895

PATIENT
  Sex: Female

DRUGS (5)
  1. ADEMETIONINE [Concomitant]
     Active Substance: ADEMETIONINE
     Indication: FOETAL EXPOSURE DURING PREGNANCY
     Dosage: MATERNAL DOSE: 400 MG
     Route: 064
  2. MAALOX ANTACID [Concomitant]
     Active Substance: ALUMINUM HYDROXIDE\DIMETHICONE\MAGNESIUM HYDROXIDE
     Indication: FOETAL EXPOSURE DURING PREGNANCY
     Dosage: MATERNAL DOSE: 400 MG
     Route: 064
  3. LEVETIRACETAM. [Suspect]
     Active Substance: LEVETIRACETAM
     Indication: FOETAL EXPOSURE DURING PREGNANCY
     Dosage: MATERNAL DOSE: 1500 MG, QD
     Route: 064
     Dates: start: 20150301
  4. LEVETIRACETAM. [Suspect]
     Active Substance: LEVETIRACETAM
     Dosage: 2000 MG, QD
     Route: 064
     Dates: start: 20151222, end: 20160206
  5. FOLIC ACID. [Concomitant]
     Active Substance: FOLIC ACID
     Indication: FOETAL EXPOSURE DURING PREGNANCY
     Dosage: MATERNAL DOSE: 5000 UG
     Route: 064
     Dates: start: 20150301

REACTIONS (4)
  - Congenital arterial malformation [Not Recovered/Not Resolved]
  - Right aortic arch [Not Recovered/Not Resolved]
  - Subclavian artery aneurysm [Not Recovered/Not Resolved]
  - Foetal exposure during pregnancy [Unknown]
